FAERS Safety Report 25981649 (Version 3)
Quarter: 2025Q4

REPORT INFORMATION
  Report Type: Report from Study
  Country: US (occurrence: US)
  Receive Date: 20251031
  Receipt Date: 20251221
  Transmission Date: 20260117
  Serious: Yes (Hospitalization)
  Sender: ABBVIE
  Company Number: US-ABBVIE-6520787

PATIENT
  Age: 76 Year
  Sex: Male

DRUGS (2)
  1. SKYRIZI [Suspect]
     Active Substance: RISANKIZUMAB-RZAA
     Indication: Crohn^s disease
     Route: 058
     Dates: start: 20241210
  2. SKYRIZI [Suspect]
     Active Substance: RISANKIZUMAB-RZAA
     Route: 058
     Dates: start: 20250315

REACTIONS (9)
  - Pain [Not Recovered/Not Resolved]
  - Asthenia [Unknown]
  - Iron deficiency [Recovering/Resolving]
  - Ulcer [Recovering/Resolving]
  - Arthritis [Recovering/Resolving]
  - Gait inability [Recovering/Resolving]
  - Illness [Recovering/Resolving]
  - Traumatic lung injury [Recovering/Resolving]
  - Herpes zoster [Unknown]

NARRATIVE: CASE EVENT DATE: 20250101
